FAERS Safety Report 19003780 (Version 1)
Quarter: 2021Q1

REPORT INFORMATION
  Report Type: Spontaneous
  Country: GB (occurrence: GB)
  Receive Date: 20210312
  Receipt Date: 20210312
  Transmission Date: 20210420
  Serious: Yes (Death, Other)
  Sender: FDA-Public Use
  Company Number: GB-ABBVIE-20K-167-3245008-00

PATIENT

DRUGS (1)
  1. IBRUTINIB [Suspect]
     Active Substance: IBRUTINIB
     Indication: MANTLE CELL LYMPHOMA
     Route: 065

REACTIONS (13)
  - Hepatic function abnormal [Unknown]
  - Death [Fatal]
  - Cardiac disorder [Unknown]
  - Drug interaction [Unknown]
  - Muscle spasms [Unknown]
  - Rash [Unknown]
  - Arthralgia [Unknown]
  - Infection [Unknown]
  - Fallopian tube cancer [Unknown]
  - Fatigue [Unknown]
  - Toxicity to various agents [Unknown]
  - Haemorrhage [Unknown]
  - Asthenia [Unknown]
